FAERS Safety Report 8471295-2 (Version None)
Quarter: 2012Q2

REPORT INFORMATION
  Report Type: 
  Country: None (occurrence: None)
  Receive Date: 20120627
  Receipt Date: 20120622
  Transmission Date: 20120825
  Serious: Yes (Other)
  Sender: FDA-Public Use
  Company Number: US-PFIZER INC-2012132655

PATIENT
  Sex: Female
  Weight: 49.705 kg

DRUGS (6)
  1. CELEBREX [Suspect]
     Dosage: 200 MG, 1X/DAY
     Dates: start: 20120531
  2. CELEBREX [Suspect]
     Indication: MUSCULOSKELETAL PAIN
     Dosage: 200 MG, 1X/DAY
     Dates: start: 20080101
  3. CELEBREX [Suspect]
     Dosage: 1 WEEK THERAPY
     Dates: start: 20110101, end: 20110101
  4. ACTONEL [Concomitant]
     Indication: OSTEOARTHRITIS
     Dosage: 35 MG, WEEKLY
     Dates: end: 20110101
  5. CALCIUM WITH VITAMIN D [Concomitant]
     Dosage: UNK
     Dates: end: 20110101
  6. CELEBREX [Suspect]
     Indication: BACK PAIN
     Dosage: 200 MG, 2X/DAY
     Route: 048
     Dates: start: 20080101, end: 20080101

REACTIONS (5)
  - GASTRITIS [None]
  - WEIGHT DECREASED [None]
  - GASTRIC ULCER [None]
  - ABDOMINAL DISCOMFORT [None]
  - APHAGIA [None]
